FAERS Safety Report 5001647-4 (Version None)
Quarter: 2006Q2

REPORT INFORMATION
  Report Type: 
  Country: None (occurrence: None)
  Receive Date: 20060511
  Receipt Date: 20060511
  Transmission Date: 20061013
  Serious: Yes (Death)
  Sender: FDA-Public Use
  Company Number: None

PATIENT
  Age: 62 Year
  Sex: Male
  Weight: 82 kg

DRUGS (4)
  1. NEURONTIN [Suspect]
     Indication: NEUROPATHY PERIPHERAL
     Dosage: 300MG TID
     Dates: start: 20051101, end: 20060201
  2. METFORMIN [Suspect]
     Indication: DIABETES MELLITUS
     Dosage: 500MG BID
     Dates: start: 20051101, end: 20060201
  3. ATENOLOL [Concomitant]
  4. POTASSIUM CHLORIDE [Concomitant]

REACTIONS (8)
  - DEHYDRATION [None]
  - DRUG ERUPTION [None]
  - DRUG INEFFECTIVE [None]
  - FOLLICULITIS [None]
  - MUCOSAL INFLAMMATION [None]
  - RENAL FAILURE ACUTE [None]
  - SEPSIS [None]
  - TOXIC EPIDERMAL NECROLYSIS [None]
